FAERS Safety Report 22387686 (Version 1)
Quarter: 2023Q2

REPORT INFORMATION
  Report Type: Spontaneous
  Country: FR (occurrence: FR)
  Receive Date: 20230531
  Receipt Date: 20230531
  Transmission Date: 20230722
  Serious: Yes (Life-Threatening, Hospitalization)
  Sender: FDA-Public Use
  Company Number: None

PATIENT
  Age: 36 Year
  Sex: Female
  Weight: 61 kg

DRUGS (2)
  1. MIRTAZAPINE [Suspect]
     Active Substance: MIRTAZAPINE
     Indication: Toxicity to various agents
     Dosage: 10 TABLET IN ONE INTAKE (LABORATORY NOT SPECIFIED)
     Route: 048
     Dates: start: 20230423, end: 20230423
  2. OXAZEPAM [Suspect]
     Active Substance: OXAZEPAM
     Indication: Toxicity to various agents
     Dosage: NOT SPECIFIED
     Route: 048
     Dates: start: 20230423, end: 20230423

REACTIONS (4)
  - Coma [Recovered/Resolved]
  - Toxicity to various agents [Recovered/Resolved]
  - Hypoxia [Recovered/Resolved]
  - Tachycardia [Recovered/Resolved]

NARRATIVE: CASE EVENT DATE: 20230423
